FAERS Safety Report 5195221-7 (Version None)
Quarter: 2006Q4

REPORT INFORMATION
  Report Type: 
  Country: None (occurrence: None)
  Receive Date: 20061229
  Receipt Date: 20061109
  Transmission Date: 20070319
  Serious: Yes (Other)
  Sender: FDA-Public Use
  Company Number: US-PFIZER INC-2006138770

PATIENT
  Sex: Female
  Weight: 63.5 kg

DRUGS (10)
  1. NEURONTIN [Suspect]
     Indication: NERVE INJURY
     Dates: start: 20050101, end: 20061109
  2. NEURONTIN [Suspect]
     Indication: ARTHRALGIA
  3. HYDROCODONE BITARTRATE [Concomitant]
     Indication: BACK PAIN
  4. LASIX [Concomitant]
  5. POTASSIUM ACETATE [Concomitant]
  6. ADVAIR DISKUS 100/50 [Concomitant]
     Indication: ASTHMA
  7. ATROVENT [Concomitant]
     Indication: ASTHMA
  8. ATIVAN [Concomitant]
     Indication: SLEEP DISORDER
  9. VITAMINS [Concomitant]
  10. NORTRIPTYLINE HCL [Concomitant]

REACTIONS (9)
  - ABASIA [None]
  - GAIT DISTURBANCE [None]
  - OEDEMA PERIPHERAL [None]
  - PAIN IN EXTREMITY [None]
  - POISONING [None]
  - RASH [None]
  - SKIN DISCOLOURATION [None]
  - SURGERY [None]
  - VISION BLURRED [None]
